FAERS Safety Report 7376903-5 (Version None)
Quarter: 2011Q1

REPORT INFORMATION
  Report Type: 
  Country: None (occurrence: None)
  Receive Date: 20110327
  Receipt Date: 20110317
  Transmission Date: 20110831
  Serious: Yes (Hospitalization)
  Sender: FDA-Public Use
  Company Number: US-BRISTOL-MYERS SQUIBB COMPANY-15615107

PATIENT
  Age: 52 Year
  Sex: Male

DRUGS (4)
  1. INSULIN LISPRO [Suspect]
     Indication: TYPE 2 DIABETES MELLITUS
     Dosage: 1 DF = 12,20,18,24 U,HUMALOG LISPRO PEN DISPOSABLE,VIAL,24U,18U15FEB-15FEB11
     Dates: start: 20000101
  2. GLUCOPHAGE [Suspect]
  3. LANTUS [Concomitant]
  4. ACTOS [Concomitant]

REACTIONS (8)
  - BLOOD POTASSIUM INCREASED [None]
  - INCORRECT DOSE ADMINISTERED [None]
  - CORONARY ARTERY DISEASE [None]
  - WEIGHT INCREASED [None]
  - HUNGER [None]
  - BLOOD GLUCOSE FLUCTUATION [None]
  - RENAL IMPAIRMENT [None]
  - ANAEMIA [None]
